FAERS Safety Report 10052623 (Version 1)
Quarter: 2014Q2

REPORT INFORMATION
  Report Type: Report from Study
  Country: US (occurrence: US)
  Receive Date: 20140402
  Receipt Date: 20140402
  Transmission Date: 20141212
  Serious: Yes (Other)
  Sender: FDA-Public Use
  Company Number: US-ASTELLAS-2014US003336

PATIENT
  Age: 59 Year
  Sex: Female

DRUGS (8)
  1. ERLOTINIB TABLET [Suspect]
     Indication: NEOPLASM MALIGNANT
     Dosage: 150 MG, UID/QD
     Route: 048
     Dates: start: 2012
  2. CARBOPLATIN [Concomitant]
     Indication: PRODUCT USED FOR UNKNOWN INDICATION
     Dosage: 4AUC
     Route: 065
     Dates: start: 20130207
  3. CARBOPLATIN [Concomitant]
     Dosage: 6AUC
     Route: 065
     Dates: start: 20121205
  4. CARBOPLATIN [Concomitant]
     Dosage: 5AUC
     Route: 065
  5. ALIMTA [Concomitant]
     Indication: PRODUCT USED FOR UNKNOWN INDICATION
     Dosage: 500 MG/M2, Q3W
     Route: 065
     Dates: start: 20121205
  6. GEMCITABINE                        /01215702/ [Concomitant]
     Indication: PRODUCT USED FOR UNKNOWN INDICATION
     Dosage: 750 MG/M2, UNKNOWN/D
     Route: 065
  7. GEMCITABINE                        /01215702/ [Concomitant]
     Dosage: 500 MG/M2, UNKNOWN/D
     Route: 065
     Dates: start: 20130523
  8. GEMCITABINE                        /01215702/ [Concomitant]
     Dosage: 500 MG/M2, UNKNOWN/D
     Route: 065
     Dates: start: 20130705

REACTIONS (16)
  - Drug ineffective [Unknown]
  - Thrombocytopenia [Unknown]
  - Pancytopenia [Unknown]
  - Malignant neoplasm progression [Unknown]
  - Neuropathy peripheral [Unknown]
  - Myalgia [Unknown]
  - Anxiety [Unknown]
  - Depression [Unknown]
  - Nausea [Unknown]
  - Vomiting [Unknown]
  - Decreased appetite [Unknown]
  - Stomatitis [Unknown]
  - Skin ulcer [Unknown]
  - Fatigue [Unknown]
  - Headache [Unknown]
  - Glomerular filtration rate decreased [Unknown]
